FAERS Safety Report 13356293 (Version 3)
Quarter: 2017Q3

REPORT INFORMATION
  Report Type: Spontaneous
  Country: SE (occurrence: SE)
  Receive Date: 20170321
  Receipt Date: 20170905
  Transmission Date: 20171127
  Serious: Yes (Other)
  Sender: FDA-Public Use
  Company Number: SE-JNJFOC-20170316821

PATIENT
  Age: 41 Year
  Sex: Male

DRUGS (7)
  1. ASACOL [Concomitant]
     Active Substance: MESALAMINE
     Indication: PSORIASIS
     Route: 065
  2. STELARA [Suspect]
     Active Substance: USTEKINUMAB
     Indication: ARTHROPATHY
     Route: 058
     Dates: start: 20150708, end: 201612
  3. METHOTREXATE. [Concomitant]
     Active Substance: METHOTREXATE
     Route: 065
  4. PREDNISOLONE. [Concomitant]
     Active Substance: PREDNISOLONE
     Route: 065
     Dates: start: 201607
  5. STELARA [Suspect]
     Active Substance: USTEKINUMAB
     Indication: PSORIASIS
     Route: 058
     Dates: start: 20150708, end: 201612
  6. FLAGYL [Concomitant]
     Active Substance: METRONIDAZOLE\METRONIDAZOLE HYDROCHLORIDE
     Route: 065
     Dates: start: 201609
  7. CIPROFLOXACIN. [Concomitant]
     Active Substance: CIPROFLOXACIN
     Route: 065
     Dates: start: 201609

REACTIONS (3)
  - Psoriasis [Unknown]
  - Anal cancer [Unknown]
  - Erectile dysfunction [Unknown]

NARRATIVE: CASE EVENT DATE: 201608
